FAERS Safety Report 5519058-1 (Version None)
Quarter: 2007Q4

REPORT INFORMATION
  Report Type: 
  Country: None (occurrence: None)
  Receive Date: 20071116
  Receipt Date: 20071112
  Transmission Date: 20080405
  Serious: Yes (Hospitalization)
  Sender: FDA-Public Use
  Company Number: US-BRISTOL-MYERS SQUIBB COMPANY-13978978

PATIENT
  Age: 42 Year
  Sex: Female
  Weight: 82 kg

DRUGS (2)
  1. CYTOXAN [Suspect]
  2. SOLU-MEDROL [Suspect]
     Route: 042

REACTIONS (1)
  - INTESTINAL PERFORATION [None]
